FAERS Safety Report 15606972 (Version 1)
Quarter: 2018Q4

REPORT INFORMATION
  Report Type: Spontaneous
  Country: AR (occurrence: AR)
  Receive Date: 20181112
  Receipt Date: 20181112
  Transmission Date: 20190205
  Serious: Yes (Hospitalization)
  Sender: FDA-Public Use
  Company Number: AR-GLAXOSMITHKLINE-AR2018GSK204915

PATIENT
  Age: 40 Year
  Sex: Female

DRUGS (1)
  1. BENLYSTA [Suspect]
     Active Substance: BELIMUMAB
     Indication: SYSTEMIC LUPUS ERYTHEMATOSUS
     Dosage: UNK
     Dates: start: 20120101, end: 20181005

REACTIONS (14)
  - Tachycardia [Unknown]
  - Abnormal behaviour [Unknown]
  - Weight decreased [Unknown]
  - Anaemia [Unknown]
  - Feeling cold [Unknown]
  - Condition aggravated [Unknown]
  - Peripheral swelling [Unknown]
  - Aggression [Unknown]
  - Fatigue [Unknown]
  - Insomnia [Unknown]
  - Fluid retention [Unknown]
  - Urticaria [Unknown]
  - Alopecia [Unknown]
  - Chills [Unknown]

NARRATIVE: CASE EVENT DATE: 201712
